FAERS Safety Report 23909328 (Version 1)
Quarter: 2024Q2

REPORT INFORMATION
  Report Type: Spontaneous
  Country: US (occurrence: US)
  Receive Date: 20240528
  Receipt Date: 20240528
  Transmission Date: 20240716
  Serious: No
  Sender: FDA-Public Use
  Company Number: US-AMNEAL PHARMACEUTICALS-2024-AMRX-00994

PATIENT
  Age: 45 Year
  Sex: Female
  Weight: 77 kg

DRUGS (4)
  1. BUPRENORPHINE TRANSDERMAL SYSTEM [Suspect]
     Active Substance: BUPRENORPHINE
     Indication: Pain
     Dosage: 10 MCG/HOUR, 1X/WEEK
     Route: 062
     Dates: start: 20240213
  2. TRAZODONE [Concomitant]
     Active Substance: TRAZODONE HYDROCHLORIDE
     Indication: Product used for unknown indication
     Dosage: 50 MILLIGRAM, 1 /DAY
     Route: 048
     Dates: start: 202308
  3. HYDROCODONE [Concomitant]
     Active Substance: HYDROCODONE
     Indication: Product used for unknown indication
     Dosage: 5/325 MG
     Route: 048
     Dates: start: 2002
  4. CYCLOBENZAPRINE [Concomitant]
     Active Substance: CYCLOBENZAPRINE
     Indication: Product used for unknown indication
     Dosage: 10 MG
     Route: 048
     Dates: start: 2022

REACTIONS (6)
  - Skin swelling [Not Recovered/Not Resolved]
  - Application site irritation [Not Recovered/Not Resolved]
  - Erythema [Not Recovered/Not Resolved]
  - Rash macular [Not Recovered/Not Resolved]
  - Application site reaction [Not Recovered/Not Resolved]
  - Hypersensitivity [Not Recovered/Not Resolved]

NARRATIVE: CASE EVENT DATE: 20240201
